FAERS Safety Report 17635720 (Version 3)
Quarter: 2020Q2

REPORT INFORMATION
  Report Type: Spontaneous
  Country: CA (occurrence: CA)
  Receive Date: 20200407
  Receipt Date: 20200415
  Transmission Date: 20200713
  Serious: Yes (Other)
  Sender: FDA-Public Use
  Company Number: CA-ORION CORPORATION ORION PHARMA-TREX2020-1652

PATIENT
  Age: 61 Year
  Sex: Male

DRUGS (7)
  1. SALOFALK [Concomitant]
     Route: 065
  2. ENTYVIO [Concomitant]
     Active Substance: VEDOLIZUMAB
     Route: 065
  3. CORTIMENT [Concomitant]
     Route: 065
  4. CORTENEMA [Concomitant]
     Active Substance: HYDROCORTISONE
     Route: 065
  5. MEZAVANT [Concomitant]
     Active Substance: MESALAMINE
     Route: 065
  6. XELJANZ [Concomitant]
     Active Substance: TOFACITINIB CITRATE
     Indication: COLITIS ULCERATIVE
     Route: 065
     Dates: start: 20200406
  7. METHOTREXATE (TRADE NAME UNKNOWN) [Suspect]
     Active Substance: METHOTREXATE
     Indication: PRODUCT USED FOR UNKNOWN INDICATION
     Dosage: (1 PILL, TWICE A DAY)
     Route: 065

REACTIONS (5)
  - Discomfort [Unknown]
  - Haematochezia [Unknown]
  - Burning sensation [Unknown]
  - Product use issue [Unknown]
  - Diarrhoea [Unknown]
